FAERS Safety Report 6278984-9 (Version None)
Quarter: 2009Q3

REPORT INFORMATION
  Report Type: 
  Country: None (occurrence: None)
  Receive Date: 20090723
  Receipt Date: 20070726
  Transmission Date: 20100115
  Serious: Yes (Other)
  Sender: FDA-Public Use
  Company Number: US-ASTRAZENECA-2007UW12085

PATIENT
  Age: 19556 Day
  Sex: Female
  Weight: 111.1 kg

DRUGS (10)
  1. SEROQUEL [Suspect]
     Indication: BIPOLAR DISORDER
     Route: 048
     Dates: start: 20020416, end: 20060510
  2. SEROQUEL [Suspect]
     Dosage: 25 MG - 100 MG
     Route: 048
     Dates: start: 20020514
  3. ACTOS [Concomitant]
     Route: 048
  4. LITHOBID [Concomitant]
     Dosage: STRENGTH- 300 MG, 600 MG.  DOSE- 300- 600 MG DAILY
     Route: 048
  5. CELEXA [Concomitant]
     Route: 048
  6. DEPAKOTE [Concomitant]
     Dosage: STRENGTH- 250 MG, 750 MG.  DOSE- 250- 750 MG DAILY
     Route: 048
  7. LIPITOR [Concomitant]
     Route: 048
  8. GUAIFENEX LA [Concomitant]
  9. PRILOSEC [Concomitant]
  10. VYTORIN [Concomitant]
     Dosage: STRENGTH 10

REACTIONS (5)
  - DIABETES MELLITUS INADEQUATE CONTROL [None]
  - DIABETIC NEUROPATHY [None]
  - HYPERGLYCAEMIA [None]
  - TYPE 2 DIABETES MELLITUS [None]
  - VISION BLURRED [None]
